FAERS Safety Report 9889813 (Version 1)
Quarter: 2014Q1

REPORT INFORMATION
  Report Type: Report from Study
  Country: US (occurrence: US)
  Receive Date: 20140212
  Receipt Date: 20140212
  Transmission Date: 20141002
  Serious: Yes (Death)
  Sender: FDA-Public Use
  Company Number: US-ROCHE-1327470

PATIENT
  Sex: Male

DRUGS (9)
  1. AVASTIN [Suspect]
     Indication: COLON CANCER
     Route: 041
     Dates: start: 20101206
  2. 5-FLUOROURACIL [Concomitant]
     Dosage: OVER 22 HOURS
     Route: 041
     Dates: start: 20101206
  3. 5-FLUOROURACIL [Concomitant]
     Route: 040
     Dates: start: 20101206
  4. CALCIUM GLUCONATE [Concomitant]
     Route: 041
     Dates: start: 20101206
  5. LEVOLEUCOVORIN [Concomitant]
     Route: 041
     Dates: start: 20101206
  6. OXALIPLATIN [Concomitant]
     Route: 041
     Dates: start: 20101206
  7. REGLAN [Concomitant]
     Route: 041
     Dates: start: 20101206
  8. DECADRON [Concomitant]
     Route: 041
     Dates: start: 20101206
  9. ZOFRAN [Concomitant]
     Route: 041
     Dates: start: 20101206

REACTIONS (1)
  - Death [Fatal]
